FAERS Safety Report 7904806-3 (Version None)
Quarter: 2011Q4

REPORT INFORMATION
  Report Type: 
  Country: None (occurrence: None)
  Receive Date: 20111109
  Receipt Date: 20111026
  Transmission Date: 20120403
  Serious: Yes (Hospitalization)
  Sender: FDA-Public Use
  Company Number: PHHY2011JP74907

PATIENT
  Sex: Male

DRUGS (8)
  1. CORTRIL [Concomitant]
     Indication: HYPOPITUITARISM
     Dosage: 20 MG, DAILY
     Route: 048
  2. URSO 250 [Concomitant]
     Indication: HEPATITIS C
     Dosage: 600 MG, DAILY
     Route: 048
  3. SILECE [Concomitant]
     Indication: INSOMNIA
     Dosage: 1 MG, DAILY
     Route: 048
  4. TASIGNA [Suspect]
     Indication: CHRONIC MYELOID LEUKAEMIA
     Dosage: 300 MG, DAILY
     Route: 048
     Dates: start: 20110811, end: 20110815
  5. LEVOTHYROXINE SODIUM [Concomitant]
     Indication: HYPOPITUITARISM
     Dosage: 100 UG, DAILY
     Route: 048
  6. PURSENNID [Concomitant]
     Indication: CONSTIPATION
     Dosage: 24 MG, DAILY
     Route: 048
     Dates: start: 20110411
  7. LASIX [Concomitant]
     Indication: GENERALISED OEDEMA
     Dosage: 20 MG, DAILY
     Route: 048
     Dates: start: 20110411
  8. AMOBAN [Concomitant]
     Indication: INSOMNIA
     Dosage: 7.5 MG, DAILY
     Route: 048

REACTIONS (4)
  - HYPERAMYLASAEMIA [None]
  - PANCREATITIS ACUTE [None]
  - BACK PAIN [None]
  - ABDOMINAL PAIN [None]
